FAERS Safety Report 25802346 (Version 1)
Quarter: 2025Q3

REPORT INFORMATION
  Report Type: Spontaneous
  Country: US (occurrence: US)
  Receive Date: 20250915
  Receipt Date: 20250915
  Transmission Date: 20251021
  Serious: No
  Sender: EISAI
  Company Number: US-Eisai-EC-2025-196067

PATIENT

DRUGS (1)
  1. LEQEMBI [Suspect]
     Active Substance: LECANEMAB-IRMB
     Indication: Product used for unknown indication
     Route: 042
     Dates: end: 2025

REACTIONS (2)
  - Amyloid related imaging abnormality-oedema/effusion [Unknown]
  - Disorientation [Unknown]

NARRATIVE: CASE EVENT DATE: 20250101
